FAERS Safety Report 9702201 (Version 1)
Quarter: 2013Q4

REPORT INFORMATION
  Report Type: Spontaneous
  Country: GB (occurrence: GB)
  Receive Date: 20131121
  Receipt Date: 20131121
  Transmission Date: 20140711
  Serious: Yes (Hospitalization, Other)
  Sender: FDA-Public Use
  Company Number: GB-MYLANLABS-2013S1025305

PATIENT
  Age: 82 Year
  Sex: Female

DRUGS (10)
  1. BISOPROLOL [Suspect]
     Indication: MYOCARDIAL INFARCTION
     Route: 048
     Dates: start: 201212, end: 201307
  2. TICAGRELOR [Suspect]
     Indication: MYOCARDIAL INFARCTION
     Route: 048
     Dates: start: 20121229, end: 20130718
  3. TICAGRELOR [Suspect]
     Indication: ACUTE MYOCARDIAL INFARCTION
     Route: 048
     Dates: start: 20121229, end: 20130718
  4. ASPIRIN [Concomitant]
     Indication: PRODUCT USED FOR UNKNOWN INDICATION
     Dates: start: 201212
  5. LEVOTHYROXINE [Concomitant]
     Indication: PRODUCT USED FOR UNKNOWN INDICATION
  6. OMEPRAZOLE [Concomitant]
     Indication: GASTROINTESTINAL DISORDER
     Route: 048
  7. OXYCODONE [Concomitant]
     Indication: PAIN
     Route: 048
  8. PREDNISOLONE [Concomitant]
     Indication: FIBROMYALGIA
     Route: 048
  9. RAMIPRIL [Concomitant]
     Indication: MYOCARDIAL INFARCTION
     Route: 048
     Dates: start: 201212
  10. SIMVASTATIN [Concomitant]
     Indication: MYOCARDIAL INFARCTION
     Route: 048
     Dates: start: 201212

REACTIONS (3)
  - Atrial flutter [Recovered/Resolved]
  - Electrocardiogram abnormal [Recovered/Resolved]
  - Syncope [Recovered/Resolved]
